FAERS Safety Report 16263002 (Version 1)
Quarter: 2019Q2

REPORT INFORMATION
  Report Type: Spontaneous
  Country: DE (occurrence: DE)
  Receive Date: 20190502
  Receipt Date: 20190502
  Transmission Date: 20190711
  Serious: Yes (Hospitalization)
  Sender: FDA-Public Use
  Company Number: DE-ROCHE-2310695

PATIENT
  Age: 13 Year
  Sex: Female

DRUGS (10)
  1. BUDESONIDE. [Concomitant]
     Active Substance: BUDESONIDE
     Route: 048
  2. GANCICLOVIR. [Suspect]
     Active Substance: GANCICLOVIR
     Indication: CYTOMEGALOVIRUS INFECTION
     Route: 048
  3. MELPHALAN. [Concomitant]
     Active Substance: MELPHALAN
  4. BUSULFAN. [Concomitant]
     Active Substance: BUSULFAN
  5. METHOTREXATE. [Concomitant]
     Active Substance: METHOTREXATE
     Indication: PROPHYLAXIS AGAINST GRAFT VERSUS HOST DISEASE
  6. CYCLOSPORINE. [Concomitant]
     Active Substance: CYCLOSPORINE
     Indication: PROPHYLAXIS AGAINST GRAFT VERSUS HOST DISEASE
  7. FOSCARNET [Concomitant]
     Active Substance: FOSCARNET
  8. GANCICLOVIR. [Suspect]
     Active Substance: GANCICLOVIR
     Indication: CYTOMEGALOVIRUS INFECTION
     Route: 042
  9. CYCLOPHOSPHAMIDE. [Concomitant]
     Active Substance: CYCLOPHOSPHAMIDE
  10. ATG [ANTITHYMOCYTE IMMUNOGLOBULIN] [Concomitant]

REACTIONS (1)
  - Chronic graft versus host disease in intestine [Recovered/Resolved]
